FAERS Safety Report 23685250 (Version 2)
Quarter: 2024Q4

REPORT INFORMATION
  Report Type: Spontaneous
  Country: RS (occurrence: RS)
  Receive Date: 20240329
  Receipt Date: 20241122
  Transmission Date: 20250114
  Serious: Yes (Hospitalization, Disabling)
  Sender: VIIV
  Company Number: RS-ViiV Healthcare Limited-RS2023EME184444

PATIENT

DRUGS (1)
  1. TIVICAY [Suspect]
     Active Substance: DOLUTEGRAVIR SODIUM
     Indication: HIV infection
     Dosage: 1 DF, QD
     Route: 048
     Dates: start: 20230625

REACTIONS (8)
  - Anaemia [Not Recovered/Not Resolved]
  - Hypotonia [Not Recovered/Not Resolved]
  - Fatigue [Not Recovered/Not Resolved]
  - Malaise [Not Recovered/Not Resolved]
  - Dizziness [Not Recovered/Not Resolved]
  - Tachycardia [Not Recovered/Not Resolved]
  - Headache [Not Recovered/Not Resolved]
  - Peripheral coldness [Not Recovered/Not Resolved]

NARRATIVE: CASE EVENT DATE: 20230715
